FAERS Safety Report 6976350-1 (Version None)
Quarter: 2010Q3

REPORT INFORMATION
  Report Type: 
  Country: None (occurrence: None)
  Receive Date: 20100910
  Receipt Date: 20100904
  Transmission Date: 20110219
  Serious: Yes (Hospitalization)
  Sender: FDA-Public Use
  Company Number: PHHO2010CN13398

PATIENT
  Sex: Female
  Weight: 60 kg

DRUGS (1)
  1. AFINITOR [Suspect]
     Indication: METASTATIC RENAL CELL CARCINOMA
     Dosage: 10 MG, QD
     Route: 048
     Dates: start: 20100710, end: 20100904

REACTIONS (3)
  - DYSPNOEA [None]
  - HYPOXIA [None]
  - PYREXIA [None]
